FAERS Safety Report 7157509-X (Version None)
Quarter: 2010Q4

REPORT INFORMATION
  Report Type: 
  Country: None (occurrence: None)
  Receive Date: 20101214
  Receipt Date: 20100216
  Transmission Date: 20110411
  Serious: No
  Sender: FDA-Public Use
  Company Number: US-ASTRAZENECA-2010SE06860

PATIENT
  Age: 22041 Day
  Sex: Male
  Weight: 86.2 kg

DRUGS (7)
  1. CRESTOR [Suspect]
     Indication: BLOOD CHOLESTEROL
     Route: 048
     Dates: start: 20100101
  2. SULFAMAX [Concomitant]
     Indication: PROSTATE INFECTION
     Dosage: 80-160 MG DAILY
  3. TOPROL-XL [Concomitant]
     Indication: CARDIAC DISORDER
  4. MULTI-VITAMIN [Concomitant]
     Indication: NUTRITIONAL SUPPORT
     Dosage: DAILY
  5. ASPIRIN [Concomitant]
     Indication: CARDIAC DISORDER
  6. ANTACID TAB [Concomitant]
     Dosage: HS
  7. FLUTICASONE NASAL SPRAY [Concomitant]
     Indication: SINUS DISORDER
     Dosage: 2 SPRAYS EACH NOSTRIL DAILY
     Route: 045

REACTIONS (1)
  - DYSURIA [None]
